FAERS Safety Report 5029215-9 (Version None)
Quarter: 2006Q2

REPORT INFORMATION
  Report Type: 
  Country: None (occurrence: None)
  Receive Date: 20060613
  Receipt Date: 20060531
  Transmission Date: 20061013
  Serious: Yes (Hospitalization)
  Sender: FDA-Public Use
  Company Number: 2006070796

PATIENT
  Age: 67 Year
  Sex: Male

DRUGS (9)
  1. METHYLPREDNISOLONE SODIUM SUCCINATE [Suspect]
     Indication: CHRONIC OBSTRUCTIVE PULMONARY DISEASE
     Dosage: 40 MG (40 MG) INTRAVENOUS
     Route: 042
     Dates: start: 20060507, end: 20060508
  2. SYNTOPHYLLIN              (AMINOPHYLLINE) [Suspect]
     Indication: CHRONIC OBSTRUCTIVE PULMONARY DISEASE
     Dosage: INTRAVENOUS
     Route: 042
     Dates: start: 20060507, end: 20060508
  3. GLIBENCLAMIDE [Concomitant]
  4. NITRENDIPINE [Concomitant]
  5. INASPIR (SALMETEROL XINAFOATE) [Concomitant]
  6. SALBUTAMOL [Concomitant]
  7. BERODUAL       (FENOTEROL HYDROBROMIDE, IPRATROPIUM BROMIDE) [Concomitant]
  8. ATROVENT [Concomitant]
  9. AMBROXOL [Concomitant]

REACTIONS (6)
  - BACK PAIN [None]
  - CHILLS [None]
  - DYSPNOEA [None]
  - PHARMACEUTICAL PRODUCT COMPLAINT [None]
  - PYREXIA [None]
  - TREMOR [None]
